FAERS Safety Report 7787694-8 (Version None)
Quarter: 2011Q3

REPORT INFORMATION
  Report Type: 
  Country: None (occurrence: None)
  Receive Date: 20110929
  Receipt Date: 20110920
  Transmission Date: 20111222
  Serious: Yes (Other)
  Sender: FDA-Public Use
  Company Number: US-ASTRAZENECA-2011SE56750

PATIENT
  Age: 62 Year
  Sex: Male

DRUGS (2)
  1. DIURETICS [Concomitant]
  2. SYMBICORT [Suspect]
     Route: 055

REACTIONS (1)
  - RENAL FAILURE [None]
